FAERS Safety Report 23966764 (Version 1)
Quarter: 2024Q2

REPORT INFORMATION
  Report Type: Spontaneous
  Country: IL (occurrence: IL)
  Receive Date: 20240612
  Receipt Date: 20240612
  Transmission Date: 20240716
  Serious: Yes (Life-Threatening)
  Sender: FDA-Public Use
  Company Number: IL-TEVA-VS-3207698

PATIENT
  Age: 45 Year
  Sex: Female

DRUGS (6)
  1. PACLITAXEL [Suspect]
     Active Substance: PACLITAXEL
     Indication: Product used for unknown indication
     Dosage: DOSAGE: MG343
     Route: 065
  2. HYDROCHLOROTHIAZIDE\RAMIPRIL [Concomitant]
     Active Substance: HYDROCHLOROTHIAZIDE\RAMIPRIL
     Dosage: 5 5MG/25MG
  3. ATENOLOL [Concomitant]
     Active Substance: ATENOLOL
  4. CETIRIZINE HYDROCHLORIDE [Concomitant]
     Active Substance: CETIRIZINE HYDROCHLORIDE
  5. CITALOPRAM HYDROBROMIDE [Concomitant]
     Active Substance: CITALOPRAM HYDROBROMIDE
  6. RAMIPRIL [Concomitant]
     Active Substance: RAMIPRIL

REACTIONS (3)
  - Dyspnoea [Unknown]
  - Back pain [Unknown]
  - Erythema [Unknown]
